FAERS Safety Report 19806455 (Version 4)
Quarter: 2023Q4

REPORT INFORMATION
  Report Type: Spontaneous
  Country: JP (occurrence: JP)
  Receive Date: 20210909
  Receipt Date: 20231206
  Transmission Date: 20240109
  Serious: Yes (Hospitalization, Other)
  Sender: FDA-Public Use
  Company Number: JP-SANOFI-2020SA362678

PATIENT
  Age: 12 Month
  Sex: Male
  Weight: 8.3 kg

DRUGS (40)
  1. SABRIL [Suspect]
     Active Substance: VIGABATRIN
     Indication: Infantile spasms
     Dosage: 60 MG, BID
     Route: 048
     Dates: start: 20200707, end: 20200713
  2. SABRIL [Suspect]
     Active Substance: VIGABATRIN
     Dosage: 120 MG, BID
     Route: 048
     Dates: start: 20200714, end: 20200719
  3. SABRIL [Suspect]
     Active Substance: VIGABATRIN
     Dosage: 150 MG, BID
     Route: 048
     Dates: start: 20200720, end: 20200819
  4. SABRIL [Suspect]
     Active Substance: VIGABATRIN
     Dosage: 200 MG, BID
     Route: 048
     Dates: start: 20200820, end: 20200910
  5. SABRIL [Suspect]
     Active Substance: VIGABATRIN
     Dosage: 250 MG, BID
     Route: 048
     Dates: start: 20200911, end: 20200924
  6. SABRIL [Suspect]
     Active Substance: VIGABATRIN
     Dosage: 300 MG, BID
     Route: 048
     Dates: start: 20200925, end: 20201029
  7. SABRIL [Suspect]
     Active Substance: VIGABATRIN
     Dosage: 350 MG, BID
     Route: 048
     Dates: start: 20201030, end: 20210519
  8. SABRIL [Suspect]
     Active Substance: VIGABATRIN
     Dosage: 250 MG, BID
     Route: 048
     Dates: start: 20210520, end: 20210718
  9. SABRIL [Suspect]
     Active Substance: VIGABATRIN
     Dosage: 200 MG, BID
     Route: 048
     Dates: start: 20210719, end: 20210725
  10. SABRIL [Suspect]
     Active Substance: VIGABATRIN
     Dosage: 150 MG, BID
     Route: 048
     Dates: start: 20210726, end: 20211017
  11. SABRIL [Suspect]
     Active Substance: VIGABATRIN
     Dosage: 200 MG, BID
     Route: 048
     Dates: start: 20211018, end: 20211104
  12. SABRIL [Suspect]
     Active Substance: VIGABATRIN
     Dosage: 225 MG, BID
     Route: 048
     Dates: start: 20211105, end: 20211119
  13. SABRIL [Suspect]
     Active Substance: VIGABATRIN
     Dosage: 250 MG, BID
     Route: 048
     Dates: start: 20211120, end: 20220113
  14. SABRIL [Suspect]
     Active Substance: VIGABATRIN
     Dosage: 275 MG, BID
     Route: 048
     Dates: start: 20220114, end: 20220127
  15. SABRIL [Suspect]
     Active Substance: VIGABATRIN
     Dosage: 300 MG, BID
     Route: 048
     Dates: start: 20220128, end: 20220213
  16. SABRIL [Suspect]
     Active Substance: VIGABATRIN
     Dosage: 325 MG, BID
     Route: 048
     Dates: start: 20220214, end: 20221222
  17. SABRIL [Suspect]
     Active Substance: VIGABATRIN
     Dosage: 350 MG, BID
     Route: 048
     Dates: start: 20221223, end: 20230323
  18. SABRIL [Suspect]
     Active Substance: VIGABATRIN
     Dosage: 375 MG, BID
     Route: 048
     Dates: start: 20230324, end: 20230427
  19. SABRIL [Suspect]
     Active Substance: VIGABATRIN
     Dosage: 250 MG, TID
     Route: 048
     Dates: start: 20230428
  20. VALPROATE SODIUM [Concomitant]
     Active Substance: VALPROATE SODIUM
     Indication: Infantile spasms
     Dosage: 230 MG/DAY
     Route: 048
     Dates: end: 20200706
  21. VALPROATE SODIUM [Concomitant]
     Active Substance: VALPROATE SODIUM
     Dosage: 200 MG/DAY
     Route: 048
     Dates: start: 20200707, end: 20210523
  22. VALPROATE SODIUM [Concomitant]
     Active Substance: VALPROATE SODIUM
     Dosage: 250 MG/DAY
     Route: 048
     Dates: start: 20210524, end: 20210713
  23. VALPROATE SODIUM [Concomitant]
     Active Substance: VALPROATE SODIUM
     Dosage: DAILY DOSE: 300 MG
     Route: 048
     Dates: start: 20210714, end: 20210720
  24. VALPROATE SODIUM [Concomitant]
     Active Substance: VALPROATE SODIUM
     Dosage: DAILY DOSE: 350 MG
     Route: 048
     Dates: start: 20210721, end: 20220616
  25. VALPROATE SODIUM [Concomitant]
     Active Substance: VALPROATE SODIUM
     Dosage: DAILY DOSE: 400 MG
     Route: 048
     Dates: start: 20220617
  26. CLONAZEPAM [Concomitant]
     Active Substance: CLONAZEPAM
     Indication: Infantile spasms
     Dosage: DAILY DOSE: 0.3 MG
     Route: 048
     Dates: start: 20201203, end: 20201209
  27. CLONAZEPAM [Concomitant]
     Active Substance: CLONAZEPAM
     Dosage: DAILY DOSE: 0.4 MG
     Route: 048
     Dates: start: 20201210, end: 20220213
  28. CLONAZEPAM [Concomitant]
     Active Substance: CLONAZEPAM
     Dosage: DAILY DOSE: 0.3 MG
     Route: 048
     Dates: start: 20220214
  29. LEVOCARNITINE [Concomitant]
     Active Substance: LEVOCARNITINE
     Indication: Product used for unknown indication
     Dosage: 5 ML/DAY
     Route: 048
     Dates: end: 20220728
  30. LEVOCARNITINE [Concomitant]
     Active Substance: LEVOCARNITINE
     Dosage: 6 ML/DAY
     Route: 048
     Dates: start: 20220729, end: 20221222
  31. LEVOCARNITINE [Concomitant]
     Active Substance: LEVOCARNITINE
     Dosage: 4 ML/DAY
     Route: 048
     Dates: start: 20221223
  32. DIAZEPAM [Concomitant]
     Active Substance: DIAZEPAM
     Indication: Infantile spasms
     Dosage: DAILY DOSE: 4 MG, PRN
     Route: 054
     Dates: start: 20200425, end: 20211017
  33. DIAZEPAM [Concomitant]
     Active Substance: DIAZEPAM
     Dosage: DAILY DOSE: 6 MG, PRN
     Route: 054
     Dates: start: 20211018
  34. ZONISAMIDE [Concomitant]
     Active Substance: ZONISAMIDE
     Indication: Infantile spasms
     Dosage: 1 DAY: 30 MG
     Route: 048
     Dates: start: 20211011, end: 20211013
  35. ZONISAMIDE [Concomitant]
     Active Substance: ZONISAMIDE
     Dosage: 1 DAY: 60 MG
     Route: 048
     Dates: start: 20211014, end: 20211016
  36. ZONISAMIDE [Concomitant]
     Active Substance: ZONISAMIDE
     Dosage: 1 DAY: 80 MG
     Route: 048
     Dates: start: 20211017, end: 20211019
  37. ZONISAMIDE [Concomitant]
     Active Substance: ZONISAMIDE
     Dosage: 1 DAY: 50 MG
     Route: 048
     Dates: start: 20211020, end: 20211022
  38. ZONISAMIDE [Concomitant]
     Active Substance: ZONISAMIDE
     Dosage: 1 DAY: 25 MG
     Route: 048
     Dates: start: 20211023, end: 20211026
  39. GLYCERIN [Concomitant]
     Active Substance: GLYCERIN
     Indication: Product used for unknown indication
     Dosage: DAILY DOSE: 30 ML, PRN
     Route: 054
     Dates: start: 20200527
  40. MIYA-BM [Concomitant]
     Active Substance: CLOSTRIDIUM BUTYRICUM SPORES STRAIN M-55
     Indication: Product used for unknown indication
     Dosage: DAILY DOSE: 0.45 G
     Route: 048
     Dates: start: 20210517

REACTIONS (4)
  - Retinal degeneration [Not Recovered/Not Resolved]
  - Bronchiolitis [Recovered/Resolved]
  - Increased bronchial secretion [Recovered/Resolved]
  - Bronchitis [Not Recovered/Not Resolved]

NARRATIVE: CASE EVENT DATE: 20201207
